FAERS Safety Report 16691804 (Version 1)
Quarter: 2019Q3

REPORT INFORMATION
  Report Type: Spontaneous
  Country: US (occurrence: US)
  Receive Date: 20190812
  Receipt Date: 20190812
  Transmission Date: 20191004
  Serious: No
  Sender: FDA-Public Use
  Company Number: US-DRREDDYS-USA/USA/19/0112868

PATIENT
  Sex: Female
  Weight: 76.5 kg

DRUGS (1)
  1. NITROGLYCERIN. [Suspect]
     Active Substance: NITROGLYCERIN
     Indication: OESOPHAGEAL DISORDER
     Dosage: BEFORE MEALS 3X AS NEEDED
     Route: 060
     Dates: start: 20190726, end: 20190726

REACTIONS (2)
  - Headache [Recovered/Resolved]
  - Off label use [Unknown]
